FAERS Safety Report 23123346 (Version 1)
Quarter: 2023Q4

REPORT INFORMATION
  Report Type: Spontaneous
  Country: AR (occurrence: AR)
  Receive Date: 20231030
  Receipt Date: 20231030
  Transmission Date: 20240110
  Serious: Yes (Death, Other)
  Sender: FDA-Public Use
  Company Number: AR-AMGEN-ARGSP2023189807

PATIENT
  Age: 40 Year
  Sex: Female

DRUGS (9)
  1. CARFILZOMIB [Suspect]
     Active Substance: CARFILZOMIB
     Indication: Plasmacytoma
     Dosage: UNK
     Route: 065
  2. POMALIDOMIDE [Suspect]
     Active Substance: POMALIDOMIDE
     Indication: Plasmacytoma
     Dosage: UNK
     Route: 065
  3. DEXAMETHASONE [Suspect]
     Active Substance: DEXAMETHASONE
     Indication: Plasmacytoma
     Dosage: UNK
     Route: 065
  4. BORTEZOMIB [Concomitant]
     Active Substance: BORTEZOMIB
     Indication: Plasmacytoma
     Dosage: UNK
     Route: 065
  5. LENALIDOMIDE [Concomitant]
     Active Substance: LENALIDOMIDE
     Indication: Plasmacytoma
     Dosage: UNK
     Route: 065
  6. THALIDOMIDE [Concomitant]
     Active Substance: THALIDOMIDE
     Indication: Plasmacytoma
     Dosage: UNK
     Route: 065
  7. PLATINUM [Concomitant]
     Active Substance: PLATINUM
     Indication: Plasmacytoma
     Dosage: UNK
     Route: 065
  8. ADRIAMYCIN [Concomitant]
     Active Substance: DOXORUBICIN HYDROCHLORIDE
     Indication: Plasmacytoma
     Dosage: UNK
     Route: 065
  9. CYCLOPHOSPHAMIDE [Concomitant]
     Active Substance: CYCLOPHOSPHAMIDE
     Indication: Plasmacytoma
     Dosage: UNK
     Route: 065

REACTIONS (3)
  - Death [Fatal]
  - Plasmacytoma [Unknown]
  - Off label use [Unknown]
